FAERS Safety Report 25612380 (Version 1)
Quarter: 2025Q3

REPORT INFORMATION
  Report Type: Spontaneous
  Country: EU (occurrence: EU)
  Receive Date: 20250728
  Receipt Date: 20250728
  Transmission Date: 20251020
  Serious: Yes (Life-Threatening)
  Sender: MYLAN
  Company Number: None

PATIENT
  Age: 15 Day
  Sex: Female
  Weight: 0.638 kg

DRUGS (16)
  1. DEXMEDETOMIDINE [Suspect]
     Active Substance: DEXMEDETOMIDINE
     Indication: Product used for unknown indication
     Dosage: 0.05 MICROGRAM/KILOGRAM, QH
     Dates: start: 20250512, end: 20250513
  2. DEXMEDETOMIDINE [Suspect]
     Active Substance: DEXMEDETOMIDINE
     Dosage: 0.05 MICROGRAM/KILOGRAM, QH
     Route: 042
     Dates: start: 20250512, end: 20250513
  3. DEXMEDETOMIDINE [Suspect]
     Active Substance: DEXMEDETOMIDINE
     Dosage: 0.05 MICROGRAM/KILOGRAM, QH
     Route: 042
     Dates: start: 20250512, end: 20250513
  4. DEXMEDETOMIDINE [Suspect]
     Active Substance: DEXMEDETOMIDINE
     Dosage: 0.05 MICROGRAM/KILOGRAM, QH
     Dates: start: 20250512, end: 20250513
  5. FENTANYL [Concomitant]
     Active Substance: FENTANYL
  6. FENTANYL [Concomitant]
     Active Substance: FENTANYL
     Route: 042
  7. FENTANYL [Concomitant]
     Active Substance: FENTANYL
     Route: 042
  8. FENTANYL [Concomitant]
     Active Substance: FENTANYL
  9. DOBUTAMINE HYDROCHLORIDE [Concomitant]
     Active Substance: DOBUTAMINE HYDROCHLORIDE
  10. DOBUTAMINE HYDROCHLORIDE [Concomitant]
     Active Substance: DOBUTAMINE HYDROCHLORIDE
     Route: 042
  11. DOBUTAMINE HYDROCHLORIDE [Concomitant]
     Active Substance: DOBUTAMINE HYDROCHLORIDE
     Route: 042
  12. DOBUTAMINE HYDROCHLORIDE [Concomitant]
     Active Substance: DOBUTAMINE HYDROCHLORIDE
  13. CAFFEINE [Concomitant]
     Active Substance: CAFFEINE
  14. CAFFEINE [Concomitant]
     Active Substance: CAFFEINE
     Route: 042
  15. CAFFEINE [Concomitant]
     Active Substance: CAFFEINE
     Route: 042
  16. CAFFEINE [Concomitant]
     Active Substance: CAFFEINE

REACTIONS (1)
  - Neonatal hypotension [Recovered/Resolved]

NARRATIVE: CASE EVENT DATE: 20250513
